FAERS Safety Report 8791201 (Version 1)
Quarter: 2012Q4

REPORT INFORMATION
  Report Type: Spontaneous
  Country: None (occurrence: None)
  Receive Date: 20120911
  Receipt Date: 20120911
  Transmission Date: 20130627
  Serious: Yes (Other)
  Sender: FDA-Public Use
  Company Number: AUR-APL-2012-03790

PATIENT
  Age: 70 Year
  Sex: Female

DRUGS (9)
  1. AMLODIPINE (AMLODIPINE) [Suspect]
     Indication: HYPERTENSION
     Route: 048
     Dates: start: 20120729, end: 20120729
  2. ASPIRIN (ACETYLSALICYLIC ACID) [Concomitant]
  3. ATROVASTATIN (ATROVASTATIN) [Concomitant]
  4. CANDESARTAN (CANDESARTAN) [Concomitant]
  5. CLOPIDOGREL (CLOPIDOGREL) [Concomitant]
  6. CO-CODAMOL (PANADEINE) [Concomitant]
  7. FUROSEMIDE (FUROSEMIDE) [Concomitant]
  8. IBUPROFEN (IBUPROFEN) [Concomitant]
  9. RAMIPRIL (RAMIPRIL) [Concomitant]

REACTIONS (2)
  - Balance disorder [None]
  - Headache [None]
